FAERS Safety Report 7339384-3 (Version None)
Quarter: 2011Q1

REPORT INFORMATION
  Report Type: 
  Country: None (occurrence: None)
  Receive Date: 20110308
  Receipt Date: 20110228
  Transmission Date: 20110831
  Serious: Yes (Hospitalization)
  Sender: FDA-Public Use
  Company Number: BR-ASTRAZENECA-2011SE11388

PATIENT
  Age: 53 Year
  Sex: Female
  Weight: 67 kg

DRUGS (3)
  1. SELOZOK [Suspect]
     Indication: HYPERTENSION
     Route: 048
     Dates: start: 20100801
  2. UNKNOWN [Suspect]
     Indication: SEDATION
     Route: 048
     Dates: start: 20100801
  3. ATENSINA [Suspect]
     Indication: HYPERTENSION
     Route: 048
     Dates: start: 20100801

REACTIONS (1)
  - BLOOD PRESSURE INADEQUATELY CONTROLLED [None]
